APPROVED DRUG PRODUCT: TETRABENAZINE
Active Ingredient: TETRABENAZINE
Strength: 25MG
Dosage Form/Route: TABLET;ORAL
Application: A204574 | Product #002 | TE Code: AB
Applicant: HETERO LABS LTD UNIT V
Approved: Feb 3, 2016 | RLD: No | RS: No | Type: RX